FAERS Safety Report 16126801 (Version 1)
Quarter: 2019Q2

REPORT INFORMATION
  Report Type: Spontaneous
  Country: GB (occurrence: GB)
  Receive Date: 20190327
  Receipt Date: 20190327
  Transmission Date: 20190711
  Serious: Yes (Hospitalization, Disabling, Other)
  Sender: FDA-Public Use
  Company Number: None

PATIENT
  Age: 62 Year
  Sex: Male
  Weight: 87.75 kg

DRUGS (1)
  1. MICARDIS HCT [Suspect]
     Active Substance: HYDROCHLOROTHIAZIDE\TELMISARTAN
     Indication: HYPERTENSION
     Dosage: ?          QUANTITY:1 TABLET(S);?
     Route: 048
     Dates: start: 20090301, end: 20190301

REACTIONS (4)
  - Lung neoplasm [None]
  - Pleural neoplasm [None]
  - Tumour necrosis [None]
  - Deep vein thrombosis [None]

NARRATIVE: CASE EVENT DATE: 20111101
